FAERS Safety Report 6149760-2 (Version None)
Quarter: 2009Q2

REPORT INFORMATION
  Report Type: 
  Country: None (occurrence: None)
  Receive Date: 20090409
  Receipt Date: 20090401
  Transmission Date: 20091009
  Serious: Yes (Other)
  Sender: FDA-Public Use
  Company Number: NL-AMGEN-UK341111

PATIENT
  Sex: Female
  Weight: 70 kg

DRUGS (4)
  1. NEUPOGEN [Suspect]
     Indication: CHEMOTHERAPY
     Dates: start: 20020115
  2. DOXORUBICIN HCL [Concomitant]
  3. CYCLOPHOSPHAMIDE [Concomitant]
  4. AVONEX [Concomitant]
     Dates: start: 19971205

REACTIONS (2)
  - ARTHRITIS [None]
  - POLYNEUROPATHY [None]
